FAERS Safety Report 5107150-5 (Version None)
Quarter: 2006Q3

REPORT INFORMATION
  Report Type: 
  Country: None (occurrence: None)
  Receive Date: 20060913
  Receipt Date: 20060824
  Transmission Date: 20061208
  Serious: Yes (Other)
  Sender: FDA-Public Use
  Company Number: US200608005299

PATIENT
  Sex: Female

DRUGS (2)
  1. FORTEO [Suspect]
     Indication: DRUG USE FOR UNKNOWN INDICATION
  2. FORTEO PEN (FORTEO PEN) [Concomitant]

REACTIONS (2)
  - OVARIAN CANCER [None]
  - PHARMACEUTICAL PRODUCT COMPLAINT [None]
